FAERS Safety Report 16778058 (Version 8)
Quarter: 2020Q2

REPORT INFORMATION
  Report Type: Spontaneous
  Country: US (occurrence: US)
  Receive Date: 20190905
  Receipt Date: 20200413
  Transmission Date: 20200713
  Serious: Yes (Hospitalization)
  Sender: FDA-Public Use
  Company Number: US-ACTELION-A-US2019-195240

PATIENT
  Age: 9 Month
  Sex: Female

DRUGS (20)
  1. MUCOMYST [Concomitant]
     Active Substance: ACETYLCYSTEINE
     Dosage: 2 ML, BID
     Route: 055
     Dates: start: 201408
  2. HYDROCHLOROTHIAZIDE W/SPIRONOLACTONE [Concomitant]
     Dosage: 25 MG, BID
  3. ACETYLCYSTEINE. [Concomitant]
     Active Substance: ACETYLCYSTEINE
     Dosage: 2 ML, BID
  4. IRON [Concomitant]
     Active Substance: IRON
  5. MULTIVITAMINS WITH IRON [Concomitant]
     Active Substance: IRON\VITAMINS
  6. SILDENAFIL. [Concomitant]
     Active Substance: SILDENAFIL
     Dosage: 3 ML, Q6HRS
  7. LANSOPRAZOLE. [Concomitant]
     Active Substance: LANSOPRAZOLE
     Dosage: 3 MG/ML, QD
     Route: 048
  8. TRACLEER [Suspect]
     Active Substance: BOSENTAN
     Dosage: 16 MG, BID
     Route: 048
     Dates: start: 20190418
  9. ALBUTEROL. [Concomitant]
     Active Substance: ALBUTEROL
     Dosage: 0.5 ML, BID
     Route: 055
     Dates: start: 201408
  10. AMLODIPINE [Concomitant]
     Active Substance: AMLODIPINE BESYLATE
     Dosage: 0.6 ML, BID
  11. FLUTICASONE. [Concomitant]
     Active Substance: FLUTICASONE
     Dosage: 1 SPRAY, QD
     Route: 045
  12. TRACLEER [Suspect]
     Active Substance: BOSENTAN
     Indication: PULMONARY ARTERIAL HYPERTENSION
     Dosage: 32 MG, BID (HALF TABLET)
     Route: 048
     Dates: start: 20191024, end: 20200317
  13. FLOVENT [Concomitant]
     Active Substance: FLUTICASONE PROPIONATE
     Dosage: 2 PUFF, BID
     Route: 055
     Dates: start: 201508
  14. VIAGRA [Concomitant]
     Active Substance: SILDENAFIL CITRATE
     Dosage: 5.8 MG
  15. SILDENAFIL. [Concomitant]
     Active Substance: SILDENAFIL
     Dosage: 10 MG/ML, Q6 HRS
     Route: 048
  16. FORMOTEROL W/MOMETASONE [Concomitant]
     Active Substance: FORMOTEROL\MOMETASONE
     Dosage: 2 PUFFS, BID
  17. DULERA [Concomitant]
     Active Substance: FORMOTEROL FUMARATE DIHYDRATE\MOMETASONE FUROATE
     Dosage: 100 MCG, BID
  18. ALDACTAZIDE [Concomitant]
     Active Substance: HYDROCHLOROTHIAZIDE\SPIRONOLACTONE
     Dosage: 07 ML, BID
  19. POLYVISOL [Concomitant]
     Dosage: 0.5 ML, QAM
  20. LIDOCAINE. [Concomitant]
     Active Substance: LIDOCAINE
     Dosage: 4 %
     Route: 061

REACTIONS (7)
  - Respiratory failure [Recovered/Resolved]
  - Influenza [Recovered/Resolved]
  - Rhinovirus infection [Recovered/Resolved]
  - Enterovirus infection [Unknown]
  - Unevaluable event [Unknown]
  - Hypoxia [Recovered/Resolved]
  - Respiratory distress [Unknown]

NARRATIVE: CASE EVENT DATE: 20190909
